FAERS Safety Report 6095944-1 (Version None)
Quarter: 2009Q1

REPORT INFORMATION
  Report Type: 
  Country: None (occurrence: None)
  Receive Date: 20090227
  Receipt Date: 20080807
  Transmission Date: 20090719
  Serious: No
  Sender: FDA-Public Use
  Company Number: A0738857A

PATIENT
  Age: 59 Year
  Sex: Female

DRUGS (7)
  1. LAMICTAL [Suspect]
     Indication: BIPOLAR DISORDER
     Route: 048
     Dates: start: 20071101
  2. CYTOMEL [Suspect]
  3. SYNTHROID [Suspect]
  4. LEVOXYL [Concomitant]
     Indication: HYPOTHYROIDISM
  5. EFFEXOR [Concomitant]
  6. ZOLOFT [Concomitant]
  7. CLONOPIN [Concomitant]
     Dosage: .5MG AS REQUIRED

REACTIONS (4)
  - ACCIDENTAL OVERDOSE [None]
  - DIZZINESS [None]
  - INCORRECT DOSE ADMINISTERED [None]
  - NAUSEA [None]
